FAERS Safety Report 7384232-9 (Version None)
Quarter: 2011Q1

REPORT INFORMATION
  Report Type: 
  Country: None (occurrence: None)
  Receive Date: 20110323
  Receipt Date: 20110317
  Transmission Date: 20110831
  Serious: Yes (Death)
  Sender: FDA-Public Use
  Company Number: SP03559

PATIENT
  Sex: Male

DRUGS (2)
  1. COLAZAL [Suspect]
     Indication: PRODUCT USED FOR UNKNOWN INDICATION
     Dosage: 7500 MG (3750 MG, 2 IN 1 D),ORAL
     Route: 048
     Dates: start: 20090121
  2. AZASAN [Suspect]
     Indication: PRODUCT USED FOR UNKNOWN INDICATION
     Dosage: 112.5 MG (112.5 MG 1 IN 1 D), ORAL
     Route: 048
     Dates: start: 20090121

REACTIONS (1)
  - DEATH [None]
